FAERS Safety Report 9346058 (Version 8)
Quarter: 2014Q1

REPORT INFORMATION
  Report Type: Spontaneous
  Country: JP (occurrence: JP)
  Receive Date: 20130613
  Receipt Date: 20140311
  Transmission Date: 20141002
  Serious: Yes (Hospitalization, Disabling, Other)
  Sender: FDA-Public Use
  Company Number: JP-SANOFI-AVENTIS-2013SA059616

PATIENT
  Age: 61 Year
  Sex: Male
  Weight: 61 kg

DRUGS (8)
  1. LANSOPRAZOLE [Suspect]
     Indication: GASTRIC ULCER
     Route: 065
     Dates: start: 20130128, end: 20130226
  2. ALFACALCIDOL [Suspect]
     Indication: BONE METABOLISM DISORDER
     Route: 065
     Dates: start: 20110801
  3. CALTAN [Suspect]
     Indication: HYPERPHOSPHATAEMIA
     Route: 065
     Dates: start: 20110801
  4. DELLEGRA [Suspect]
     Indication: SEASONAL ALLERGY
     Route: 048
     Dates: start: 20130501, end: 20130512
  5. TELMISARTAN [Suspect]
     Indication: HYPERTENSION
     Route: 065
     Dates: start: 20110801
  6. NIFEDIPINE [Suspect]
     Indication: HYPERTENSION
     Route: 065
     Dates: start: 20110801
  7. CALBLOCK [Suspect]
     Indication: HYPERTENSION
     Route: 065
     Dates: start: 20110801
  8. MINERALS NOS [Suspect]
     Indication: HYPERPHOSPHATAEMIA
     Route: 065
     Dates: start: 20130128, end: 20130226

REACTIONS (10)
  - Altered state of consciousness [Recovered/Resolved]
  - Toxicity to various agents [Recovering/Resolving]
  - Disorientation [Recovering/Resolving]
  - Gait disturbance [Recovering/Resolving]
  - Incoherent [Recovering/Resolving]
  - Agitation [Recovering/Resolving]
  - Insomnia [Recovering/Resolving]
  - Tremor [Recovering/Resolving]
  - Hallucinations, mixed [Recovering/Resolving]
  - Pyrexia [Unknown]
